FAERS Safety Report 4804021-6 (Version None)
Quarter: 2005Q4

REPORT INFORMATION
  Report Type: 
  Country: None (occurrence: None)
  Receive Date: 20051014
  Receipt Date: 20051004
  Transmission Date: 20060501
  Serious: Yes (Hospitalization)
  Sender: FDA-Public Use
  Company Number: PHO 2005-029

PATIENT
  Age: 59 Year
  Sex: Female

DRUGS (1)
  1. PHOTOFRIN [Suspect]
     Indication: OESOPHAGEAL SQUAMOUS CELL CARCINOMA RECURRENT
     Dosage: 1 MG/KG IV
     Route: 042
     Dates: start: 19980101

REACTIONS (3)
  - ARTERITIS [None]
  - ARTERY DISSECTION [None]
  - HAEMOPTYSIS [None]
